FAERS Safety Report 6610221-5 (Version None)
Quarter: 2010Q1

REPORT INFORMATION
  Report Type: 
  Country: None (occurrence: None)
  Receive Date: 20100302
  Receipt Date: 20100224
  Transmission Date: 20100710
  Serious: Yes (Other)
  Sender: FDA-Public Use
  Company Number: US-JNJFOC-20100210805

PATIENT
  Age: 19 Month
  Sex: Female

DRUGS (1)
  1. CYCLOBENZAPRINE [Suspect]
     Indication: ACCIDENTAL EXPOSURE

REACTIONS (7)
  - ACCIDENTAL DRUG INTAKE BY CHILD [None]
  - GAIT DISTURBANCE [None]
  - HYPERSOMNIA [None]
  - IRRITABILITY [None]
  - SCREAMING [None]
  - VOMITING [None]
  - WALKING DISABILITY [None]
